FAERS Safety Report 7308379-8 (Version None)
Quarter: 2011Q1

REPORT INFORMATION
  Report Type: 
  Country: None (occurrence: None)
  Receive Date: 20110223
  Receipt Date: 20110221
  Transmission Date: 20110831
  Serious: Yes (Other)
  Sender: FDA-Public Use
  Company Number: D0069666A

PATIENT
  Sex: Female
  Weight: 62 kg

DRUGS (1)
  1. SUMATRIPTAN SUCCINATE [Suspect]
     Indication: MIGRAINE
     Dosage: 100MG AS DIRECTED
     Route: 048

REACTIONS (2)
  - MALIGNANT MELANOMA [None]
  - IRIS DISORDER [None]
